FAERS Safety Report 4972492-0 (Version None)
Quarter: 2006Q2

REPORT INFORMATION
  Report Type: 
  Country: None (occurrence: None)
  Receive Date: 20060413
  Receipt Date: 20060410
  Transmission Date: 20061013
  Serious: Yes (Hospitalization)
  Sender: FDA-Public Use
  Company Number: CA-MERCK-0604CAN00032

PATIENT
  Sex: Female

DRUGS (1)
  1. ALENDRONATE SODIUM [Suspect]
     Route: 048
     Dates: start: 19950101, end: 20060401

REACTIONS (5)
  - CARDIAC DISORDER [None]
  - DYSPNOEA [None]
  - GASTRIC DISORDER [None]
  - MALAISE [None]
  - OESOPHAGEAL DISORDER [None]
